FAERS Safety Report 9808801 (Version 2)
Quarter: 2014Q3

REPORT INFORMATION
  Report Type: Spontaneous
  Country: US (occurrence: US)
  Receive Date: 20140110
  Receipt Date: 20140831
  Transmission Date: 20150326
  Serious: Yes (Hospitalization, Other)
  Sender: FDA-Public Use
  Company Number: US-009507513-1401USA003358

PATIENT
  Sex: Female

DRUGS (2)
  1. NUVARING [Suspect]
     Active Substance: ETHINYL ESTRADIOL\ETONOGESTREL
     Indication: CONTRACEPTION
     Dosage: UNK
     Route: 067
     Dates: end: 20120806
  2. NUVARING [Suspect]
     Active Substance: ETHINYL ESTRADIOL\ETONOGESTREL
     Indication: MENORRHAGIA

REACTIONS (12)
  - Hyperproteinaemia [Unknown]
  - Heparin-induced thrombocytopenia [Unknown]
  - Anxiety [Unknown]
  - Deep vein thrombosis [Unknown]
  - Iron deficiency anaemia [Unknown]
  - Depression [Unknown]
  - Pulmonary embolism [Unknown]
  - Presyncope [Unknown]
  - Off label use [Recovered/Resolved]
  - Migraine [Unknown]
  - Hypertension [Unknown]
  - Metabolic acidosis [Unknown]

NARRATIVE: CASE EVENT DATE: 20120723
